FAERS Safety Report 9408408 (Version 1)
Quarter: 2013Q3

REPORT INFORMATION
  Report Type: Spontaneous
  Country: US (occurrence: US)
  Receive Date: 20130718
  Receipt Date: 20130718
  Transmission Date: 20140515
  Serious: Yes (Hospitalization)
  Sender: FDA-Public Use
  Company Number: 2012P1014248

PATIENT
  Age: 74 Year
  Sex: Male
  Weight: 80.74 kg

DRUGS (1)
  1. LOTRIMIN ULTRA [Suspect]
     Route: 061
     Dates: start: 20120224, end: 20120301

REACTIONS (1)
  - Road traffic accident [Not Recovered/Not Resolved]
